FAERS Safety Report 4689412-9 (Version None)
Quarter: 2005Q2

REPORT INFORMATION
  Report Type: 
  Country: None (occurrence: None)
  Receive Date: 20050608
  Receipt Date: 20050412
  Transmission Date: 20051028
  Serious: No
  Sender: FDA-Public Use
  Company Number: 2005-BP-06195BP

PATIENT
  Sex: Female

DRUGS (8)
  1. SPIRIVA [Suspect]
     Indication: CHRONIC OBSTRUCTIVE PULMONARY DISEASE
     Dosage: 18 MCG (18 MCG, QD), IH
     Route: 055
     Dates: start: 20050405
  2. SPIRIVA [Suspect]
     Indication: EMPHYSEMA
     Dosage: 18 MCG (18 MCG, QD), IH
     Route: 055
     Dates: start: 20050405
  3. VERAPAMIL [Concomitant]
  4. ATACAND [Concomitant]
  5. PRAVACHOL [Concomitant]
  6. ENULOSE [Concomitant]
  7. LORAZEPAM [Concomitant]
  8. TEMAZEPAM [Concomitant]

REACTIONS (2)
  - NAUSEA [None]
  - RHINORRHOEA [None]
